FAERS Safety Report 9728471 (Version 1)
Quarter: 2013Q4

REPORT INFORMATION
  Report Type: Spontaneous
  Country: NO (occurrence: NO)
  Receive Date: 20131204
  Receipt Date: 20131204
  Transmission Date: 20140711
  Serious: Yes (Hospitalization)
  Sender: FDA-Public Use
  Company Number: NO-UCBSA-104331

PATIENT
  Age: 76 Year
  Sex: Male

DRUGS (1)
  1. CIMZIA [Suspect]
     Indication: RHEUMATOID ARTHRITIS
     Route: 058
     Dates: start: 20130527, end: 2013

REACTIONS (2)
  - Dysarthria [Recovered/Resolved]
  - Facial asymmetry [Recovered/Resolved]
